FAERS Safety Report 21328176 (Version 1)
Quarter: 2022Q3

REPORT INFORMATION
  Report Type: Report from Study
  Country: TR (occurrence: TR)
  Receive Date: 20220913
  Receipt Date: 20220913
  Transmission Date: 20221027
  Serious: Yes (Life-Threatening, Hospitalization)
  Sender: FDA-Public Use
  Company Number: TR-NOVARTISPH-NVSC2019TR106219

PATIENT
  Age: 65 Year
  Sex: Male

DRUGS (4)
  1. DOCETAXEL [Suspect]
     Active Substance: DOCETAXEL
     Indication: Lung squamous cell carcinoma stage IV
     Dosage: 155 MG, Q3W
     Route: 042
     Dates: start: 20190729
  2. DOCETAXEL [Suspect]
     Active Substance: DOCETAXEL
     Dosage: 111 MG, Q3W
     Route: 042
     Dates: start: 20190819
  3. XANAX [Concomitant]
     Active Substance: ALPRAZOLAM
     Indication: Anxiety
     Dosage: 1 MG, PRN
     Route: 048
     Dates: start: 201903
  4. DICLOFLAM [Concomitant]
     Indication: Arthralgia
     Dosage: 50 MG, PRN
     Route: 048
     Dates: start: 2017

REACTIONS (1)
  - Febrile neutropenia [Recovered/Resolved]

NARRATIVE: CASE EVENT DATE: 20190805
